FAERS Safety Report 6502027-2 (Version None)
Quarter: 2009Q4

REPORT INFORMATION
  Report Type: 
  Country: None (occurrence: None)
  Receive Date: 20091214
  Receipt Date: 20091130
  Transmission Date: 20100525
  Serious: Yes (Hospitalization, Disabling, Other)
  Sender: FDA-Public Use
  Company Number: 1000009691

PATIENT
  Age: 68 Year
  Sex: Female

DRUGS (4)
  1. MEMANTINE HCL [Suspect]
     Indication: DEMENTIA ALZHEIMER'S TYPE
     Dosage: 20 MG (20 MG,1 IN 1 D), ORAL : 10 MG (10 MG,1 IN 1 D), ORAL
     Route: 048
     Dates: start: 20090801
  2. MEMANTINE HCL [Suspect]
     Indication: DEMENTIA ALZHEIMER'S TYPE
     Dosage: 5 MG (5 MG,1 IN 1 D),ORAL
     Route: 048
  3. MEMANTINE HCL [Suspect]
     Indication: DEMENTIA ALZHEIMER'S TYPE
     Dosage: 10 MG (10 MG,1 IN 1 D),ORAL
     Route: 048
  4. DONEPEZIL HCL [Concomitant]

REACTIONS (3)
  - CONDITION AGGRAVATED [None]
  - HALLUCINATION, VISUAL [None]
  - PERSECUTORY DELUSION [None]
